FAERS Safety Report 12051312 (Version 2)
Quarter: 2016Q1

REPORT INFORMATION
  Report Type: Spontaneous
  Country: US (occurrence: US)
  Receive Date: 20160209
  Receipt Date: 20160222
  Transmission Date: 20160526
  Serious: No
  Sender: FDA-Public Use
  Company Number: US-BAYER-2016-025331

PATIENT
  Age: 48 Year
  Sex: Female

DRUGS (1)
  1. EOVIST [Suspect]
     Active Substance: GADOXETATE DISODIUM
     Indication: NUCLEAR MAGNETIC RESONANCE IMAGING ABDOMINAL
     Dosage: UNK

REACTIONS (3)
  - Hypersensitivity [Unknown]
  - Rash [None]
  - Erythema [None]

NARRATIVE: CASE EVENT DATE: 20160116
